FAERS Safety Report 7358405-5 (Version None)
Quarter: 2011Q1

REPORT INFORMATION
  Report Type: 
  Country: None (occurrence: None)
  Receive Date: 20110307
  Receipt Date: 20100201
  Transmission Date: 20110831
  Serious: No
  Sender: FDA-Public Use
  Company Number: AEUSA201000035

PATIENT
  Age: 57 Year
  Sex: Male

DRUGS (2)
  1. PROLASTIN [Suspect]
     Indication: ALPHA-1 ANTI-TRYPSIN DEFICIENCY
     Dosage: 8000 MG;QW;IV
     Route: 042
     Dates: start: 20000301
  2. PROLASTIN [Suspect]

REACTIONS (3)
  - URTICARIA [None]
  - PRURITUS [None]
  - RASH MACULO-PAPULAR [None]
